FAERS Safety Report 8878942 (Version 2)
Quarter: 2012Q4

REPORT INFORMATION
  Report Type: 
  Country: US (occurrence: US)
  Receive Date: 20121026
  Receipt Date: 20121114
  Transmission Date: 20130627
  Serious: Yes (Disabling)
  Sender: FDA-Public Use
  Company Number: US-MYLANLABS-2012S1021655

PATIENT
  Age: 60 Year
  Sex: Female

DRUGS (4)
  1. ATENOLOL [Suspect]
     Indication: HYPERTENSION
     Route: 048
     Dates: start: 201011, end: 201105
  2. LEVOTHYROXINE [Concomitant]
     Indication: HYPOTHYROIDISM
  3. TOLMETIN [Concomitant]
     Indication: ARTHRITIS
  4. DIOVAN [Concomitant]
     Indication: BLOOD PRESSURE INCREASED
     Dates: start: 2007

REACTIONS (7)
  - Dementia [Not Recovered/Not Resolved]
  - Bedridden [Not Recovered/Not Resolved]
  - Confusional state [Not Recovered/Not Resolved]
  - Decreased appetite [Not Recovered/Not Resolved]
  - Weight decreased [Not Recovered/Not Resolved]
  - Lack of spontaneous speech [Not Recovered/Not Resolved]
  - Heart rate decreased [Recovered/Resolved]
